FAERS Safety Report 5816587-8 (Version None)
Quarter: 2008Q3

REPORT INFORMATION
  Report Type: 
  Country: None (occurrence: None)
  Receive Date: 20080721
  Receipt Date: 20080709
  Transmission Date: 20090109
  Serious: Yes (Death, Other)
  Sender: FDA-Public Use
  Company Number: CN-ROCHE-575762

PATIENT
  Age: 4 Year
  Sex: Male
  Weight: 11 kg

DRUGS (2)
  1. CEFTRIAXONE SODIUM [Suspect]
     Indication: BRONCHITIS
     Dosage: GIVEN WITH 250ML 5% GLUCOSE SODIUM CHLORIDE.
     Route: 041
  2. DEXAMETHASONE [Concomitant]
     Indication: BRONCHITIS
     Dosage: GIVEN WITH 250ML 5% GLUCOSE SODIUM CHLORIDE.
     Route: 041

REACTIONS (6)
  - CYANOSIS [None]
  - DEATH [None]
  - OVERDOSE [None]
  - PRODUCTIVE COUGH [None]
  - RESTLESSNESS [None]
  - RHINORRHOEA [None]
